FAERS Safety Report 5975913-X (Version None)
Quarter: 2008Q4

REPORT INFORMATION
  Report Type: 
  Country: None (occurrence: None)
  Receive Date: 20081202
  Receipt Date: 20080211
  Transmission Date: 20090506
  Serious: No
  Sender: FDA-Public Use
  Company Number: US-AMGEN-KDL264935

PATIENT
  Sex: Female

DRUGS (1)
  1. ENBREL [Suspect]
     Indication: ANKYLOSING SPONDYLITIS
     Route: 058
     Dates: start: 20040901

REACTIONS (4)
  - ANKYLOSING SPONDYLITIS [None]
  - BRONCHITIS [None]
  - LARYNGITIS [None]
  - NASOPHARYNGITIS [None]
